FAERS Safety Report 9689102 (Version 1)
Quarter: 2013Q4

REPORT INFORMATION
  Report Type: Report from Study
  Country: BR (occurrence: BR)
  Receive Date: 20131114
  Receipt Date: 20131114
  Transmission Date: 20140711
  Serious: Yes (Hospitalization, Other)
  Sender: FDA-Public Use
  Company Number: PHHY2013BR130044

PATIENT
  Sex: Male
  Weight: 58 kg

DRUGS (5)
  1. DIOVAN AMLO FIX [Suspect]
     Indication: HYPERTENSION
     Dosage: 1 DF, (320/5 MG) DAILY
     Route: 048
  2. GALVUS MET [Suspect]
     Indication: DIABETES MELLITUS
     Dosage: 1 DF, (850/50 MG) DAILY
     Route: 048
  3. SOMALGIN [Concomitant]
     Indication: COAGULOPATHY
     Dosage: 1 DF, (200 MG) DAILY
     Route: 048
  4. PROPATYLNITRATE [Concomitant]
     Indication: CARDIAC DISORDER
     Dosage: 2 DF, (10 MG) DAILY
     Route: 048
  5. SIMVASTATIN [Concomitant]
     Indication: BLOOD CHOLESTEROL
     Dosage: 2 DF, (20 MG) DAILY
     Route: 048

REACTIONS (5)
  - Cerebrovascular accident [Recovered/Resolved]
  - Cardiac disorder [Not Recovered/Not Resolved]
  - Angina pectoris [Recovered/Resolved]
  - Pain in extremity [Recovered/Resolved]
  - Fatigue [Recovered/Resolved]
